FAERS Safety Report 5670989-1 (Version None)
Quarter: 2008Q1

REPORT INFORMATION
  Report Type: 
  Country: None (occurrence: None)
  Receive Date: 20080312
  Receipt Date: 20080228
  Transmission Date: 20080703
  Serious: Yes (Other)
  Sender: FDA-Public Use
  Company Number: WAES 0707USA03463

PATIENT
  Age: 50 Year
  Sex: Female
  Weight: 62.1428 kg

DRUGS (10)
  1. CAP VORINOSTAT UNK [Suspect]
     Indication: MULTIPLE MYELOMA
     Dosage: PO
     Route: 048
     Dates: start: 20070608, end: 20070608
  2. VELCADE [Suspect]
     Indication: MULTIPLE MYELOMA
     Dosage: IV
     Route: 042
     Dates: start: 20070605, end: 20070608
  3. GEODON [Concomitant]
  4. SYNTHROID [Concomitant]
  5. HYDROCHLOROTHIAZIDE [Concomitant]
  6. LITHIUM CARBONATE [Concomitant]
  7. MORPHINE [Concomitant]
  8. QUETIAPIEN FUMARATE [Concomitant]
  9. SILDENAFIL CITRATE [Concomitant]
  10. TRAZODONE HYDROCHLORIDE [Concomitant]

REACTIONS (6)
  - DRUG TOXICITY [None]
  - DYSPNOEA [None]
  - ELECTROCARDIOGRAM QT PROLONGED [None]
  - NAUSEA [None]
  - PULMONARY HYPERTENSION [None]
  - VOMITING [None]
